FAERS Safety Report 7047162-8 (Version None)
Quarter: 2010Q4

REPORT INFORMATION
  Report Type: 
  Country: None (occurrence: None)
  Receive Date: 20101015
  Receipt Date: 20101004
  Transmission Date: 20110411
  Serious: Yes (Hospitalization)
  Sender: FDA-Public Use
  Company Number: US-ELI_LILLY_AND_COMPANY-US201008007690

PATIENT
  Sex: Female
  Weight: 55.329 kg

DRUGS (11)
  1. PEMETREXED [Suspect]
     Indication: NON-SMALL CELL LUNG CANCER STAGE IV
     Dosage: 500 MG/M2, OTHER
     Route: 042
     Dates: start: 20100618
  2. CARBOPLATIN [Suspect]
     Indication: NON-SMALL CELL LUNG CANCER STAGE IV
     Dosage: UNK, OTHER
     Route: 042
     Dates: start: 20100618
  3. BEVACIZUMAB [Suspect]
     Indication: NON-SMALL CELL LUNG CANCER STAGE IV
     Dosage: 15 MG/KG, OTHER
     Route: 042
     Dates: start: 20100618
  4. DEXAMETHASONE [Concomitant]
     Indication: PROPHYLAXIS
     Dates: start: 20100820, end: 20100821
  5. ATIVAN [Concomitant]
     Indication: ANXIETY
     Dosage: 0.5 MG, UNKNOWN
     Route: 065
     Dates: start: 20100802
  6. DARVOCET [Concomitant]
     Indication: PAIN
     Dosage: UNK, AS NEEDED
     Route: 065
     Dates: start: 20100802
  7. TOPROL-XL [Concomitant]
     Indication: HYPERTENSION
     Dosage: 5 MG, 2/D
     Route: 065
     Dates: start: 20100815, end: 20100823
  8. LISINOPRIL [Concomitant]
     Indication: HYPERTENSION
     Dosage: 20 MG, 2/D
     Route: 065
     Dates: start: 20100815
  9. HYDROCHLOROTHIAZIDE [Concomitant]
     Indication: HYPERTENSION
     Dosage: UNK, UNK
     Dates: start: 20100801, end: 20100823
  10. HYDROCHLOROTHIAZIDE [Concomitant]
     Dosage: 25 MG, DAILY (1/D)
     Route: 048
     Dates: start: 20100801
  11. VITAMIN B-12 [Concomitant]
     Indication: PROPHYLAXIS
     Dosage: UNK, OTHER
     Dates: start: 20100611

REACTIONS (6)
  - BLOOD POTASSIUM DECREASED [None]
  - BLOOD THYROID STIMULATING HORMONE INCREASED [None]
  - HYPERTENSION [None]
  - LEFT ATRIAL DILATATION [None]
  - PALPITATIONS [None]
  - SINUS ARRHYTHMIA [None]
